FAERS Safety Report 12242473 (Version 5)
Quarter: 2017Q2

REPORT INFORMATION
  Report Type: Report from Study
  Country: US (occurrence: US)
  Receive Date: 20160406
  Receipt Date: 20170502
  Transmission Date: 20170830
  Serious: Yes (Hospitalization)
  Sender: FDA-Public Use
  Company Number: PHEH2016US008198

PATIENT
  Age: 8 Year
  Sex: Female

DRUGS (5)
  1. MULTI VITAMIN [Concomitant]
     Active Substance: VITAMINS
     Indication: PRODUCT USED FOR UNKNOWN INDICATION
     Route: 065
  2. AFINITOR [Suspect]
     Active Substance: EVEROLIMUS
     Indication: ASTROCYTOMA, LOW GRADE
     Dosage: 5 MG, QD
     Route: 048
     Dates: start: 20160316
  3. AFINITOR [Suspect]
     Active Substance: EVEROLIMUS
     Dosage: 6 MG, QD
     Route: 048
     Dates: start: 20170126
  4. SABRIL [Concomitant]
     Active Substance: VIGABATRIN
     Indication: PRODUCT USED FOR UNKNOWN INDICATION
     Route: 065
  5. LAMOTRIGINE. [Concomitant]
     Active Substance: LAMOTRIGINE
     Indication: PRODUCT USED FOR UNKNOWN INDICATION
     Route: 065

REACTIONS (9)
  - Eye infection [Unknown]
  - Rash [Recovered/Resolved]
  - Eczema [Recovered/Resolved]
  - Pneumonia [Recovered/Resolved]
  - Hordeolum [Unknown]
  - Malaise [Unknown]
  - White blood cell count increased [Unknown]
  - Feeling abnormal [Unknown]
  - Viral upper respiratory tract infection [Unknown]

NARRATIVE: CASE EVENT DATE: 20160328
